FAERS Safety Report 7295744-0 (Version None)
Quarter: 2011Q1

REPORT INFORMATION
  Report Type: 
  Country: None (occurrence: None)
  Receive Date: 20110216
  Receipt Date: 20110209
  Transmission Date: 20110831
  Serious: Yes (Hospitalization)
  Sender: FDA-Public Use
  Company Number: IT-SANOFI-AVENTIS-2010SA059196

PATIENT
  Age: 72 Year
  Sex: Female

DRUGS (9)
  1. EUTIROX [Concomitant]
     Route: 048
  2. ASPIRIN [Concomitant]
     Route: 048
  3. CARDICOR [Concomitant]
     Route: 048
  4. DELTACORTENE [Concomitant]
     Route: 048
  5. PLAVIX [Suspect]
     Route: 048
     Dates: start: 20091105, end: 20091108
  6. LASIX [Concomitant]
     Route: 048
  7. TRIATEC [Concomitant]
     Route: 048
  8. PANTOPRAZOLE [Concomitant]
     Route: 048
  9. LAROXYL [Concomitant]
     Route: 048

REACTIONS (2)
  - DRY MOUTH [None]
  - RASH PAPULAR [None]
